FAERS Safety Report 9516660 (Version 1)
Quarter: 2013Q1

REPORT INFORMATION
  Report Type: Spontaneous
  Country: US (occurrence: None)
  Receive Date: 20130305
  Receipt Date: 20130305
  Transmission Date: 20140127
  Serious: Yes (Other)
  Sender: FDA-Public Use
  Company Number: 163-21880-12121460

PATIENT
  Sex: Female

DRUGS (1)
  1. REVLIMID [Suspect]
     Indication: THYROID CANCER
     Dosage: 10 MG, 1 IN 1 D
     Dates: start: 20121116, end: 201211

REACTIONS (3)
  - Thyroid cancer [None]
  - Disease progression [None]
  - Drug ineffective [None]
